FAERS Safety Report 12683078 (Version 1)
Quarter: 2016Q3

REPORT INFORMATION
  Report Type: Spontaneous
  Country: US (occurrence: None)
  Receive Date: 20160824
  Receipt Date: 20160824
  Transmission Date: 20161109
  Serious: No
  Sender: FDA-Public Use
  Company Number: None

PATIENT

DRUGS (2)
  1. NICARDIPINE HCL NICARDIPINE BAXTER HEALTHCARE CORPORATION [Suspect]
     Active Substance: NICARDIPINE HYDROCHLORIDE
  2. AMIODARONE INJECTION AMIODARONE BAXTER HEALTHCARE CORPORATION [Suspect]
     Active Substance: AMIODARONE

REACTIONS (3)
  - Drug dispensing error [None]
  - Wrong drug administered [None]
  - Product label confusion [None]
